FAERS Safety Report 6247657-0 (Version None)
Quarter: 2009Q2

REPORT INFORMATION
  Report Type: 
  Country: None (occurrence: None)
  Receive Date: 20090626
  Receipt Date: 20090616
  Transmission Date: 20091009
  Serious: Yes (Other)
  Sender: FDA-Public Use
  Company Number: JP-PFIZER INC-2009229164

PATIENT
  Age: 82 Year

DRUGS (2)
  1. ZOLOFT [Suspect]
     Indication: DEPRESSION
     Dosage: 25 MG/DAY
     Route: 048
     Dates: start: 20090603, end: 20090604
  2. SERENACE [Suspect]
     Indication: ANXIETY
     Dosage: 0.75 MG/DAY
     Route: 048
     Dates: start: 20090520, end: 20090604

REACTIONS (1)
  - DEPRESSED LEVEL OF CONSCIOUSNESS [None]
